FAERS Safety Report 9206909 (Version 1)
Quarter: 2013Q2

REPORT INFORMATION
  Report Type: Spontaneous
  Country: US (occurrence: US)
  Receive Date: 20130403
  Receipt Date: 20130403
  Transmission Date: 20140414
  Serious: Yes (Other)
  Sender: FDA-Public Use
  Company Number: US-TEVA-395390USA

PATIENT
  Sex: Male

DRUGS (1)
  1. FLUOXETINE [Suspect]
     Dosage: TAKEN FOR APPROXIMATELY ONE YEAR

REACTIONS (1)
  - Diabetes mellitus [Unknown]
